FAERS Safety Report 4300188-7 (Version None)
Quarter: 2004Q1

REPORT INFORMATION
  Report Type: 
  Country: None (occurrence: None)
  Receive Date: 20040218
  Receipt Date: 20040204
  Transmission Date: 20041129
  Serious: No
  Sender: FDA-Public Use
  Company Number: 04P-056-0250422-00

PATIENT
  Sex: Male

DRUGS (2)
  1. ULTANE [Suspect]
     Indication: ANAESTHESIA
     Dosage: INHALATION
     Dates: start: 20040101, end: 20040101
  2. PROPOFOL [Concomitant]

REACTIONS (1)
  - HEPATITIS CHOLESTATIC [None]
